FAERS Safety Report 4309975-2 (Version None)
Quarter: 2004Q1

REPORT INFORMATION
  Report Type: 
  Country: None (occurrence: None)
  Receive Date: 20040227
  Receipt Date: 20031118
  Transmission Date: 20041129
  Serious: No
  Sender: FDA-Public Use
  Company Number: FABR-10381

PATIENT
  Age: 16 Year
  Sex: Male
  Weight: 37.195 kg

DRUGS (6)
  1. FABRAZYME [Suspect]
     Indication: FABRY'S DISEASE
     Dosage: 1 MG/KG Q2WKS IV
     Route: 042
     Dates: start: 20030702
  2. BENADRYL [Concomitant]
  3. IBUPROFEN [Concomitant]
  4. PREDNISONE [Concomitant]
  5. ZANTAC [Concomitant]
  6. VISTARIL [Concomitant]

REACTIONS (2)
  - NAUSEA [None]
  - VOMITING [None]
